FAERS Safety Report 22174628 (Version 1)
Quarter: 2023Q2

REPORT INFORMATION
  Report Type: Spontaneous
  Country: NL (occurrence: NL)
  Receive Date: 20230405
  Receipt Date: 20230405
  Transmission Date: 20230721
  Serious: Yes (Other)
  Sender: FDA-Public Use
  Company Number: None

PATIENT
  Sex: Female
  Weight: 69.7 kg

DRUGS (1)
  1. SIMVASTATIN [Suspect]
     Active Substance: SIMVASTATIN
     Indication: Low density lipoprotein increased
     Dosage: ONE DAILY
     Dates: start: 20230210

REACTIONS (2)
  - Headache [Recovered/Resolved]
  - Nightmare [Recovered/Resolved]
